FAERS Safety Report 8885945 (Version 2)
Quarter: 2012Q4

REPORT INFORMATION
  Report Type: 
  Country: DE (occurrence: DE)
  Receive Date: 20121105
  Receipt Date: 20121127
  Transmission Date: 20130627
  Serious: Yes (Other)
  Sender: FDA-Public Use
  Company Number: DE-EISAI INC-E2090-02358-SPO-DE

PATIENT
  Age: 20 Year
  Sex: Male
  Weight: 52 kg

DRUGS (5)
  1. ZONEGRAN [Suspect]
     Indication: EPILEPSY
     Route: 048
     Dates: start: 20120812, end: 201210
  2. ZONEGRAN [Interacting]
     Route: 048
     Dates: start: 201210, end: 20121101
  3. ZONEGRAN [Interacting]
     Route: 048
     Dates: start: 20121102, end: 20121111
  4. ZONEGRAN [Interacting]
     Route: 048
     Dates: start: 20121112
  5. LEVETIRACETAM [Interacting]
     Indication: EPILEPSY
     Route: 048

REACTIONS (2)
  - Diarrhoea [Not Recovered/Not Resolved]
  - Drug interaction [Not Recovered/Not Resolved]
